FAERS Safety Report 4531526-8 (Version None)
Quarter: 2004Q4

REPORT INFORMATION
  Report Type: 
  Country: None (occurrence: None)
  Receive Date: 20041220
  Receipt Date: 20041208
  Transmission Date: 20050328
  Serious: Yes (Hospitalization)
  Sender: FDA-Public Use
  Company Number: US-JNJFOC-20040700902

PATIENT
  Sex: Female
  Weight: 77.11 kg

DRUGS (8)
  1. REMICADE [Suspect]
     Indication: RHEUMATOID ARTHRITIS
     Route: 042
  2. HYZAAR [Concomitant]
     Route: 049
  3. HYZAAR [Concomitant]
     Indication: HYPERTENSION
     Route: 049
  4. THYROXINE [Concomitant]
     Route: 049
  5. PREDNISONE [Concomitant]
     Indication: RHEUMATOID ARTHRITIS
  6. DARVOCET [Concomitant]
  7. DARVOCET [Concomitant]
  8. VALIUM [Concomitant]

REACTIONS (6)
  - DYSPNOEA [None]
  - FLUSHING [None]
  - PALPITATIONS [None]
  - POSTMENOPAUSAL HAEMORRHAGE [None]
  - VAGINAL HAEMORRHAGE [None]
  - VAGINITIS [None]
